FAERS Safety Report 7267313-X (Version None)
Quarter: 2011Q1

REPORT INFORMATION
  Report Type: 
  Country: None (occurrence: None)
  Receive Date: 20110201
  Receipt Date: 20091208
  Transmission Date: 20110831
  Serious: No
  Sender: FDA-Public Use
  Company Number: A0834121A

PATIENT
  Age: 67 Year
  Sex: Female

DRUGS (8)
  1. SIMVASTATIN [Concomitant]
  2. FLECAINIDE [Concomitant]
  3. ARIXTRA [Suspect]
     Dosage: 2.5MG PER DAY
     Route: 058
     Dates: start: 20090923, end: 20091001
  4. ATENOLOL [Concomitant]
  5. HYDROCHLOROTHIAZIDE [Concomitant]
  6. THYROID [Concomitant]
  7. LISINOPRIL [Concomitant]
  8. ASPIRIN [Concomitant]

REACTIONS (2)
  - INJECTION SITE SWELLING [None]
  - INJECTION SITE HAEMATOMA [None]
